FAERS Safety Report 21555877 (Version 1)
Quarter: 2022Q4

REPORT INFORMATION
  Report Type: Spontaneous
  Country: FR (occurrence: FR)
  Receive Date: 20221104
  Receipt Date: 20221104
  Transmission Date: 20230113
  Serious: Yes (Hospitalization, Other)
  Sender: FDA-Public Use
  Company Number: None

PATIENT
  Age: 52 Year
  Sex: Male
  Weight: 81 kg

DRUGS (2)
  1. MODAFINIL [Suspect]
     Active Substance: MODAFINIL
     Indication: Narcolepsy
     Dosage: FORM STRENGTH : 100 MG
     Route: 065
     Dates: start: 2003
  2. EZETIMIBE\SIMVASTATIN [Concomitant]
     Active Substance: EZETIMIBE\SIMVASTATIN
     Indication: Dyslipidaemia
     Dosage: FREQUENCY TIME : 1 DAY, UNIT DOSE: 1 DF, INEGY 10 MG/20 MG

REACTIONS (1)
  - Vascular dissection [Recovering/Resolving]

NARRATIVE: CASE EVENT DATE: 20220304
